FAERS Safety Report 10519029 (Version 3)
Quarter: 2014Q4

REPORT INFORMATION
  Report Type: Spontaneous
  Country: JP (occurrence: JP)
  Receive Date: 20141015
  Receipt Date: 20141212
  Transmission Date: 20150528
  Serious: Yes (Hospitalization)
  Sender: FDA-Public Use
  Company Number: JP-ASTRAZENECA-2014SE51081

PATIENT
  Age: 18912 Day
  Sex: Male
  Weight: 68 kg

DRUGS (4)
  1. AGENTS USED FOR COMMON COLD [Suspect]
     Active Substance: UNSPECIFIED INGREDIENT
     Dosage: DOSE UNKNOWN
     Route: 048
     Dates: start: 20130827
  2. NEXIUM [Suspect]
     Active Substance: ESOMEPRAZOLE MAGNESIUM
     Indication: HELICOBACTER INFECTION
     Route: 048
     Dates: start: 20130821, end: 20130828
  3. CLARITH (NON AZ PRODUCT) [Suspect]
     Active Substance: CLARITHROMYCIN
     Indication: HELICOBACTER INFECTION
     Route: 048
     Dates: start: 20130821, end: 20130828
  4. SAWACILLIN (NON AZ PRODUCT) [Suspect]
     Active Substance: AMOXICILLIN
     Indication: HELICOBACTER INFECTION
     Route: 048
     Dates: start: 20130821, end: 20130828

REACTIONS (3)
  - Drug eruption [Recovering/Resolving]
  - Nasopharyngitis [Unknown]
  - Liver disorder [Recovering/Resolving]

NARRATIVE: CASE EVENT DATE: 20130829
